FAERS Safety Report 9104329 (Version 2)
Quarter: 2013Q2

REPORT INFORMATION
  Report Type: Spontaneous
  Country: US (occurrence: US)
  Receive Date: 20130220
  Receipt Date: 20130506
  Transmission Date: 20140414
  Serious: Yes (Other)
  Sender: FDA-Public Use
  Company Number: PHHY2010US095072

PATIENT
  Age: 73 Year
  Sex: Female

DRUGS (4)
  1. GABAPENTIN [Suspect]
     Indication: POST HERPETIC NEURALGIA
     Dosage: 300 MG, BID
  2. BROMOCRIPTINE [Concomitant]
  3. LISINOPRIL [Concomitant]
  4. LEVOTHYROXINE [Concomitant]

REACTIONS (6)
  - Somatic delusion [Recovered/Resolved]
  - Formication [Recovered/Resolved]
  - Pain of skin [Recovered/Resolved]
  - Excoriation [Recovered/Resolved]
  - Generalised erythema [Recovered/Resolved]
  - Rash pruritic [Recovered/Resolved]
